FAERS Safety Report 23173620 (Version 1)
Quarter: 2023Q4

REPORT INFORMATION
  Report Type: Spontaneous
  Country: US (occurrence: US)
  Receive Date: 20231111
  Receipt Date: 20231111
  Transmission Date: 20240110
  Serious: Yes (Other)
  Sender: FDA-Public Use
  Company Number: US-JNJFOC-20231107251

PATIENT
  Sex: Male

DRUGS (1)
  1. ELMIRON [Suspect]
     Active Substance: PENTOSAN POLYSULFATE SODIUM
     Indication: Bladder cancer
     Route: 048
     Dates: end: 2021

REACTIONS (3)
  - Vitreous detachment [Unknown]
  - Retinal pigmentation [Unknown]
  - Off label use [Unknown]
